FAERS Safety Report 4774253-4 (Version None)
Quarter: 2005Q3

REPORT INFORMATION
  Report Type: 
  Country: None (occurrence: None)
  Receive Date: 20050914
  Receipt Date: 20050308
  Transmission Date: 20060218
  Serious: Yes (Death, Hospitalization)
  Sender: FDA-Public Use
  Company Number: 163-20785-05030177

PATIENT
  Age: 70 Year
  Sex: Male
  Weight: 76.6 kg

DRUGS (4)
  1. THALOMID [Suspect]
     Indication: NON-SMALL CELL LUNG CANCER
     Dosage: 200MG WITH A WEEKLY TITRATION OF 100MG UP TO 1000MG, DAILY, ORAL
     Route: 048
     Dates: start: 20040928, end: 20050214
  2. PACLITAXEL [Suspect]
     Indication: NON-SMALL CELL LUNG CANCER
     Dosage: 225 MG/M2, IV OVER 3 HOURS ON DAY 1 EVERY 21 DAYS X
     Route: 042
     Dates: start: 20040928
  3. CARBOPLATIN [Suspect]
     Indication: NON-SMALL CELL LUNG CANCER
     Dosage: AUC=6 IV OVER 15-30 MIN.ON DAY 1 EVERY 21 DAYS X 2
     Route: 042
     Dates: start: 20040928
  4. RADIATION THERAPY [Suspect]
     Dosage: 60 GY OVER 6 WEEKS BEGINNING BETWEEN DAYS 43-50

REACTIONS (4)
  - ARRHYTHMIA SUPRAVENTRICULAR [None]
  - COMPLETED SUICIDE [None]
  - DEATH [None]
  - DYSPHAGIA [None]
